FAERS Safety Report 9664025 (Version 1)
Quarter: 2013Q4

REPORT INFORMATION
  Report Type: Spontaneous
  Country: BR (occurrence: BR)
  Receive Date: 20131101
  Receipt Date: 20131101
  Transmission Date: 20140711
  Serious: Yes (Life-Threatening, Hospitalization, Other)
  Sender: FDA-Public Use
  Company Number: BR-PFIZER INC-2013308741

PATIENT
  Age: 45 Year
  Sex: Male

DRUGS (3)
  1. GEODON [Suspect]
     Indication: SCHIZOPHRENIA
     Dosage: UNK
     Dates: start: 2011
  2. PURINETHOL [Suspect]
     Indication: CROHN^S DISEASE
     Dosage: UNK
  3. IMURAN [Suspect]
     Indication: IMMUNOSUPPRESSANT DRUG THERAPY
     Dosage: UNK
     Dates: start: 20131025

REACTIONS (6)
  - Apparent death [Recovering/Resolving]
  - Crohn^s disease [Unknown]
  - Aggression [Recovering/Resolving]
  - Physical assault [Unknown]
  - Drug ineffective [Unknown]
  - Feeling abnormal [Unknown]
